FAERS Safety Report 21477705 (Version 1)
Quarter: 2022Q4

REPORT INFORMATION
  Report Type: Spontaneous
  Country: US (occurrence: None)
  Receive Date: 20221018
  Receipt Date: 20221018
  Transmission Date: 20230113
  Serious: Yes (Other)
  Sender: FDA-Public Use
  Company Number: None

PATIENT
  Age: 74 Year
  Sex: Female

DRUGS (1)
  1. ESTRADIOL\ESTRIOL [Suspect]
     Active Substance: ESTRADIOL\ESTRIOL
     Dosage: FREQUENCY : AT BEDTIME;?
     Route: 061
     Dates: start: 20221011, end: 20221014

REACTIONS (2)
  - Blister [None]
  - Application site vesicles [None]

NARRATIVE: CASE EVENT DATE: 20221014
